FAERS Safety Report 13142087 (Version 1)
Quarter: 2017Q1

REPORT INFORMATION
  Report Type: Spontaneous
  Country: US (occurrence: US)
  Receive Date: 20170123
  Receipt Date: 20170123
  Transmission Date: 20170428
  Serious: No
  Sender: FDA-Public Use
  Company Number: US-CELGENEUS-USA-2016127128

PATIENT
  Sex: Female

DRUGS (1)
  1. OTEZLA [Suspect]
     Active Substance: APREMILAST
     Indication: PSORIASIS
     Dosage: 60 MILLIGRAM
     Route: 048
     Dates: start: 201609

REACTIONS (9)
  - Abdominal discomfort [Not Recovered/Not Resolved]
  - Abnormal dreams [Unknown]
  - Weight decreased [Unknown]
  - Paraesthesia [Unknown]
  - Tremor [Unknown]
  - Decreased appetite [Unknown]
  - Crying [Unknown]
  - Depressed level of consciousness [Unknown]
  - Gastrointestinal disorder [Unknown]

NARRATIVE: CASE EVENT DATE: 2016
